FAERS Safety Report 5014067-3 (Version None)
Quarter: 2006Q2

REPORT INFORMATION
  Report Type: 
  Country: None (occurrence: None)
  Receive Date: 20060414
  Receipt Date: 20060112
  Transmission Date: 20061013
  Serious: No
  Sender: FDA-Public Use
  Company Number: 2006SP000604

PATIENT
  Sex: Female

DRUGS (2)
  1. LUNESTA [Suspect]
     Indication: INSOMNIA
     Dosage: X1; ORAL
     Route: 048
  2. LEXAPRO [Concomitant]

REACTIONS (3)
  - DISORIENTATION [None]
  - HALLUCINATION [None]
  - PALPITATIONS [None]
